FAERS Safety Report 22123155 (Version 4)
Quarter: 2024Q1

REPORT INFORMATION
  Report Type: Spontaneous
  Country: JP (occurrence: JP)
  Receive Date: 20230322
  Receipt Date: 20240310
  Transmission Date: 20240410
  Serious: Yes (Other)
  Sender: FDA-Public Use
  Company Number: JP-BIOGEN-2023BI01193907

PATIENT
  Age: 38 Year
  Sex: Female

DRUGS (1)
  1. TYSABRI [Suspect]
     Active Substance: NATALIZUMAB
     Indication: Multiple sclerosis
     Route: 050
     Dates: start: 20210325

REACTIONS (1)
  - Ovarian cancer [Unknown]

NARRATIVE: CASE EVENT DATE: 20221101
